FAERS Safety Report 10660714 (Version 1)
Quarter: 2014Q4

REPORT INFORMATION
  Report Type: Spontaneous
  Country: TR (occurrence: TR)
  Receive Date: 20141217
  Receipt Date: 20141217
  Transmission Date: 20150529
  Serious: Yes (Other)
  Sender: FDA-Public Use
  Company Number: TR-MYLANLABS-2014M1014579

PATIENT

DRUGS (2)
  1. BEXAROTENE CAPSULES [Suspect]
     Active Substance: BEXAROTENE
     Indication: MYCOSIS FUNGOIDES STAGE II
     Dosage: 450 MG, QD
     Route: 065
  2. METHOTREXATE [Suspect]
     Active Substance: METHOTREXATE
     Indication: MYCOSIS FUNGOIDES STAGE II
     Dosage: AMPOULE; 50MG/WEEK
     Route: 065

REACTIONS (7)
  - Weight decreased [Unknown]
  - Hypertriglyceridaemia [Unknown]
  - Genital ulceration [Unknown]
  - Nutritional condition abnormal [None]
  - Hypothyroidism [Unknown]
  - Mouth ulceration [Unknown]
  - Anaemia [None]
